FAERS Safety Report 8462522-6 (Version None)
Quarter: 2012Q2

REPORT INFORMATION
  Report Type: 
  Country: None (occurrence: None)
  Receive Date: 20120608
  Receipt Date: 20120525
  Transmission Date: 20120825
  Serious: Yes (Hospitalization)
  Sender: FDA-Public Use
  Company Number: P0578

PATIENT
  Age: 83 Year
  Sex: Male

DRUGS (16)
  1. SIPULEUCEL-T (SIPULEUCEL-T) (INFUSION) [Suspect]
     Indication: PROSTATE CANCER METASTATIC
     Dosage: INTRAVENOUS, INTRAVENOUS, INTRAVENOUS
     Route: 042
     Dates: start: 20120217, end: 20120217
  2. SIPULEUCEL-T (SIPULEUCEL-T) (INFUSION) [Suspect]
     Indication: PROSTATE CANCER METASTATIC
     Dosage: INTRAVENOUS, INTRAVENOUS, INTRAVENOUS
     Route: 042
     Dates: start: 20120120, end: 20120120
  3. SIPULEUCEL-T (SIPULEUCEL-T) (INFUSION) [Suspect]
     Indication: PROSTATE CANCER METASTATIC
     Dosage: INTRAVENOUS, INTRAVENOUS, INTRAVENOUS
     Route: 042
     Dates: start: 20120203, end: 20120203
  4. DELTASONE [Concomitant]
  5. LUPRON DEPOT [Concomitant]
  6. VITAMIN D [Concomitant]
  7. HYDROCHLOROTHIAZIDE [Concomitant]
  8. FERROUS GLUCONATE [Concomitant]
  9. ZYTIGA (AIRATERONE ACETATE) [Concomitant]
  10. CALCIUM CITRATE [Concomitant]
  11. ASPIRIN [Concomitant]
  12. ACETAMINOPHEN [Concomitant]
  13. AMLODIPINE BEYLATE (AMLODIPINE BESILATE) [Concomitant]
  14. NYSTATIN-TRIAMCINOLONE CREAM (TRIAMCINOLONE ACETONIDE, NYSTATIN) (CREA [Concomitant]
  15. POTASSIUM ACETATE [Concomitant]
  16. LEVOTHYROXINE SODIUM [Concomitant]

REACTIONS (25)
  - BODY TEMPERATURE INCREASED [None]
  - BLOOD CALCIUM DECREASED [None]
  - HAEMATURIA [None]
  - STAPHYLOCOCCAL INFECTION [None]
  - TREMOR [None]
  - INFLAMMATION [None]
  - CYSTITIS [None]
  - HAEMOGLOBIN DECREASED [None]
  - ANAEMIA [None]
  - WHITE BLOOD CELL COUNT INCREASED [None]
  - HAEMATOCRIT DECREASED [None]
  - BLOOD GLUCOSE INCREASED [None]
  - HYPOKALAEMIA [None]
  - BACTERIAL TEST POSITIVE [None]
  - BLOOD CULTURE POSITIVE [None]
  - RED BLOOD CELL COUNT DECREASED [None]
  - SYSTEMIC INFLAMMATORY RESPONSE SYNDROME [None]
  - CONFUSIONAL STATE [None]
  - BLOOD CREATININE INCREASED [None]
  - CHILLS [None]
  - RALES [None]
  - BLOOD SODIUM DECREASED [None]
  - BLOOD UREA INCREASED [None]
  - PROTEIN URINE PRESENT [None]
  - WHITE BLOOD CELLS URINE POSITIVE [None]
